FAERS Safety Report 7488755-3 (Version None)
Quarter: 2011Q2

REPORT INFORMATION
  Report Type: 
  Country: None (occurrence: None)
  Receive Date: 20110518
  Receipt Date: 20110509
  Transmission Date: 20111010
  Serious: Yes (Hospitalization)
  Sender: FDA-Public Use
  Company Number: US-CELGENEUS-163-21880-11051017

PATIENT
  Sex: Male

DRUGS (7)
  1. REVLIMID [Suspect]
     Indication: MULTIPLE MYELOMA
     Dosage: 25 MILLIGRAM
     Route: 048
     Dates: start: 20110315
  2. VITAMIN D [Concomitant]
     Route: 065
  3. RISPERIDONE [Concomitant]
     Route: 065
  4. VITAMIN C [Concomitant]
     Route: 065
  5. POTASSIUM [Concomitant]
     Route: 065
  6. REMERON [Concomitant]
     Route: 065
  7. DEXAMETHASONE [Concomitant]
     Route: 065

REACTIONS (2)
  - HYPOGLYCAEMIA [None]
  - HYPOTHERMIA [None]
